FAERS Safety Report 9656500 (Version 1)
Quarter: 2013Q4

REPORT INFORMATION
  Report Type: Spontaneous
  Country: US (occurrence: US)
  Receive Date: 20131030
  Receipt Date: 20131030
  Transmission Date: 20140711
  Serious: Yes (Hospitalization)
  Sender: FDA-Public Use
  Company Number: US-ASTRAZENECA-2013SE77722

PATIENT
  Age: 70 Year
  Sex: Male

DRUGS (2)
  1. SYMBICORT PMDI [Suspect]
     Indication: PRODUCT USED FOR UNKNOWN INDICATION
     Route: 055
  2. ADVAIR [Suspect]
     Indication: CHRONIC OBSTRUCTIVE PULMONARY DISEASE
     Dosage: 100/50 MCG, MULTI DOSE POWDER INHALER
     Route: 055
     Dates: start: 20031110

REACTIONS (3)
  - Post procedural complication [Unknown]
  - Purulent discharge [Unknown]
  - Chronic obstructive pulmonary disease [Unknown]
